FAERS Safety Report 4596347-9 (Version None)
Quarter: 2005Q1

REPORT INFORMATION
  Report Type: 
  Country: None (occurrence: None)
  Receive Date: 20050225
  Receipt Date: 20041004
  Transmission Date: 20050727
  Serious: Yes (Hospitalization)
  Sender: FDA-Public Use
  Company Number: 2004UW17341

PATIENT
  Age: 56 Year
  Sex: Female
  Weight: 95 kg

DRUGS (11)
  1. CRESTOR [Suspect]
     Indication: HYPERCHOLESTEROLAEMIA
     Dosage: 10 MG DAILY PO
     Route: 048
     Dates: start: 20040609, end: 20040629
  2. CLONIDINE [Concomitant]
  3. DIOVAN [Concomitant]
  4. DOMPERIDONE [Concomitant]
  5. ENALAPRIL [Concomitant]
  6. HYDROCHLOROTHIAZIDE [Concomitant]
  7. HUMALOG [Concomitant]
  8. LEVOTHYROXINE [Concomitant]
  9. METFORMIN [Concomitant]
  10. PAROXETINE HCL [Concomitant]
  11. PREVACID [Concomitant]

REACTIONS (10)
  - ABDOMINAL PAIN UPPER [None]
  - ALANINE AMINOTRANSFERASE INCREASED [None]
  - BLOOD ALKALINE PHOSPHATASE INCREASED [None]
  - BLOOD LACTATE DEHYDROGENASE INCREASED [None]
  - CHOLELITHIASIS [None]
  - CHROMATURIA [None]
  - GAMMA-GLUTAMYLTRANSFERASE INCREASED [None]
  - HEPATIC STEATOSIS [None]
  - RENAL FAILURE ACUTE [None]
  - RHABDOMYOLYSIS [None]
